FAERS Safety Report 5858890-1 (Version None)
Quarter: 2008Q3

REPORT INFORMATION
  Report Type: 
  Country: None (occurrence: None)
  Receive Date: 20080825
  Receipt Date: 20080808
  Transmission Date: 20090109
  Serious: Yes (Hospitalization)
  Sender: FDA-Public Use
  Company Number: 2008AL009404

PATIENT
  Age: 68 Year
  Sex: Male

DRUGS (5)
  1. DIGOXIN [Suspect]
     Indication: ATRIAL FIBRILLATION
     Dosage: 0.25MG DAILY PO
     Route: 048
     Dates: start: 19890101, end: 20080101
  2. ZOCOR [Concomitant]
  3. COUMADIN [Concomitant]
  4. COREG [Concomitant]
  5. ACCUPRIL [Concomitant]

REACTIONS (11)
  - CHEST PAIN [None]
  - CORONARY ARTERY DISEASE [None]
  - DYSPNOEA [None]
  - FATIGUE [None]
  - INCISION SITE INFECTION [None]
  - LEFT VENTRICULAR DYSFUNCTION [None]
  - NODAL ARRHYTHMIA [None]
  - PACEMAKER COMPLICATION [None]
  - PULMONARY HYPERTENSION [None]
  - WOUND HAEMORRHAGE [None]
  - WOUND INFECTION STAPHYLOCOCCAL [None]
